FAERS Safety Report 7909554-1 (Version None)
Quarter: 2011Q4

REPORT INFORMATION
  Report Type: 
  Country: None (occurrence: None)
  Receive Date: 20111111
  Receipt Date: 20111103
  Transmission Date: 20120403
  Serious: Yes (Other)
  Sender: FDA-Public Use
  Company Number: DE-JNJFOC-20110902188

PATIENT
  Age: 62 Year
  Sex: Female
  Weight: 92 kg

DRUGS (6)
  1. CARVEDILOL HEXAL [Concomitant]
     Dosage: 1- 0- 0.5
     Route: 048
     Dates: start: 20110616
  2. PRAVASTATIN SODIUM [Concomitant]
     Route: 048
  3. ATACAND [Concomitant]
     Route: 048
     Dates: start: 20101109
  4. ATACAND HCT [Concomitant]
     Dosage: 16MG/12.5MG
     Route: 048
     Dates: start: 20091203
  5. RASILEZ [Concomitant]
     Dosage: 0 - 0.5 - 0.5
     Route: 048
  6. PALEXIA RETARD [Suspect]
     Indication: PRODUCT USED FOR UNKNOWN INDICATION
     Dosage: 2X 50 MG PER DAY
     Route: 048
     Dates: start: 20110824, end: 20110824

REACTIONS (7)
  - TACHYARRHYTHMIA [None]
  - ANGINA PECTORIS [None]
  - PALPITATIONS [None]
  - ASTHENIA [None]
  - TACHYCARDIA [None]
  - DIZZINESS [None]
  - ATRIAL FIBRILLATION [None]
